FAERS Safety Report 9048980 (Version 1)
Quarter: 2013Q1

REPORT INFORMATION
  Report Type: Spontaneous
  Country: GB (occurrence: None)
  Receive Date: 20130117
  Receipt Date: 20130117
  Transmission Date: 20140127
  Serious: Yes (Life-Threatening, Hospitalization)
  Sender: FDA-Public Use
  Company Number: 2013ZX000003

PATIENT
  Age: 34 Year
  Sex: Female

DRUGS (12)
  1. SUMATRIPTAN INJECTION (SUMATRIPTAN) (6 MG) [Suspect]
     Indication: PRODUCT USED FOR UNKNOWN INDICATION
     Route: 058
  2. DOMPERIDONE (DOMPERIDONE) [Suspect]
     Indication: PRODUCT USED FOR UNKNOWN INDICATION
     Route: 048
  3. ONDANSETRON (ONDANSETRON) [Suspect]
     Indication: PRODUCT USED FOR UNKNOWN INDICATION
     Route: 048
  4. PREGABALN (PREGABALIN) [Suspect]
     Indication: PRODUCT USED FOR UNKNOWN INDICATION
     Route: 048
  5. SERTRALINE (SERTRALINE) (SERTRALINE) [Suspect]
     Indication: PRODUCT USED FOR UNKNOWN INDICATION
  6. BACLOFEN [Concomitant]
  7. DIHYDROERGOTAMINE [Concomitant]
  8. LAMOTRIGINE [Concomitant]
  9. LORATADINE [Concomitant]
  10. NAPROXEN [Concomitant]
  11. OMEPRAZOLE [Concomitant]
  12. VERAPAMIL [Concomitant]

REACTIONS (2)
  - Atrioventricular block complete [None]
  - Fall [None]
